FAERS Safety Report 6113369-7 (Version None)
Quarter: 2009Q1

REPORT INFORMATION
  Report Type: 
  Country: None (occurrence: None)
  Receive Date: 20090312
  Receipt Date: 20001213
  Transmission Date: 20090719
  Serious: No
  Sender: FDA-Public Use
  Company Number: US-ABBOTT-08P-163-0456939-00

PATIENT
  Sex: Female

DRUGS (4)
  1. DEPAKOTE [Suspect]
     Indication: BIPOLAR I DISORDER
  2. SERTRALINE [Interacting]
     Indication: DRUG USE FOR UNKNOWN INDICATION
  3. BUSPIRONE HCL [Interacting]
     Indication: DRUG USE FOR UNKNOWN INDICATION
  4. CANNABIS SATIVA [Interacting]
     Indication: DRUG USE FOR UNKNOWN INDICATION

REACTIONS (3)
  - DIARRHOEA [None]
  - DRUG INTERACTION [None]
  - NAUSEA [None]
